FAERS Safety Report 10160130 (Version 1)
Quarter: 2014Q2

REPORT INFORMATION
  Report Type: Spontaneous
  Country: CA (occurrence: CA)
  Receive Date: 20140508
  Receipt Date: 20140508
  Transmission Date: 20141212
  Serious: Yes (Other)
  Sender: FDA-Public Use
  Company Number: 2014SP001405

PATIENT
  Age: 62 Year
  Sex: Female

DRUGS (5)
  1. ALVESCO INHALATION AEROSOL [Suspect]
     Indication: PRODUCT USED FOR UNKNOWN INDICATION
     Route: 055
  2. ADVAIR [Concomitant]
  3. SPIRIVA [Concomitant]
  4. VENTOLIN /00139501/ [Concomitant]
  5. XOLAIR [Concomitant]

REACTIONS (11)
  - Blood pressure increased [Unknown]
  - Cerebrovascular accident [Unknown]
  - Dyspnoea [Unknown]
  - Hernia pain [Unknown]
  - Local swelling [Unknown]
  - Respiratory disorder [Unknown]
  - Syncope [Unknown]
  - Vision blurred [Unknown]
  - Cough [Unknown]
  - Swelling face [Unknown]
  - Drug ineffective [None]
